FAERS Safety Report 8301417-5 (Version None)
Quarter: 2012Q2

REPORT INFORMATION
  Report Type: 
  Country: None (occurrence: None)
  Receive Date: 20120420
  Receipt Date: 20120416
  Transmission Date: 20120825
  Serious: Yes (Hospitalization)
  Sender: FDA-Public Use
  Company Number: CA-ROCHE-790219

PATIENT
  Sex: Female
  Weight: 61 kg

DRUGS (9)
  1. ARAVA [Concomitant]
  2. ACTEMRA [Suspect]
     Route: 042
  3. CELEBREX [Concomitant]
  4. RABEPRAZOLE SODIUM [Concomitant]
  5. ELAVIL [Concomitant]
  6. ACTEMRA [Suspect]
     Indication: RHEUMATOID ARTHRITIS
     Route: 042
     Dates: start: 20110105, end: 20110907
  7. PREDNISONE TAB [Concomitant]
  8. PLAQUENIL [Concomitant]
  9. CALCIUM SUPPLEMENT [Concomitant]

REACTIONS (6)
  - KIDNEY INFECTION [None]
  - PYREXIA [None]
  - NAUSEA [None]
  - VOMITING [None]
  - HIP ARTHROPLASTY [None]
  - DIARRHOEA [None]
